FAERS Safety Report 5878429-4 (Version None)
Quarter: 2008Q3

REPORT INFORMATION
  Report Type: 
  Country: None (occurrence: None)
  Receive Date: 20080911
  Receipt Date: 20080905
  Transmission Date: 20090109
  Serious: Yes (Death, Life-Threatening, Other)
  Sender: FDA-Public Use
  Company Number: PHHO2006JP08411

PATIENT
  Sex: Female
  Weight: 33 kg

DRUGS (16)
  1. NEORAL [Suspect]
     Indication: LUNG TRANSPLANT
     Dosage: 150 MG / DAY
     Route: 048
     Dates: start: 20051111, end: 20060423
  2. SIMULECT [Suspect]
     Indication: LUNG TRANSPLANT
     Dosage: 20 MG, DAY 0
     Route: 042
     Dates: start: 20041201, end: 20041201
  3. SIMULECT [Suspect]
     Dosage: 20 MG, DAY 4
     Route: 042
     Dates: start: 20041201, end: 20041201
  4. PROGRAF [Suspect]
     Indication: LUNG TRANSPLANT
     Dates: end: 20051028
  5. RITUXAN [Suspect]
     Indication: EPSTEIN-BARR VIRUS ASSOCIATED LYMPHOPROLIFERATIVE DISORDER
     Dosage: 500 MG / DAY
     Route: 042
     Dates: start: 20051005, end: 20051208
  6. CELLCEPT [Suspect]
     Indication: LUNG TRANSPLANT
     Dosage: 1000 MG / DAY
     Route: 048
     Dates: start: 20051111, end: 20051121
  7. CELLCEPT [Suspect]
     Dosage: 500 MG / DAY
     Route: 048
     Dates: start: 20051122, end: 20060228
  8. CELLCEPT [Suspect]
     Dosage: 250 MG / DAY
     Route: 048
     Dates: start: 20060301, end: 20060305
  9. PREDONINE [Suspect]
     Indication: LUNG TRANSPLANT
     Dosage: 10 MG / DAY
     Route: 048
     Dates: start: 20051111, end: 20060308
  10. PREDONINE [Suspect]
     Dosage: 10 MG / DAY
     Route: 048
     Dates: start: 20060418, end: 20060423
  11. ZOVIRAX [Concomitant]
     Dosage: 200 MG / DAY
     Route: 048
     Dates: start: 20051116, end: 20060220
  12. OMEPRAZOLE [Concomitant]
     Dosage: 20 MG / DAY
     Route: 048
     Dates: start: 20051201, end: 20051207
  13. GASTER D [Concomitant]
     Dosage: 20 MG / DAY
     Route: 048
     Dates: start: 20051208, end: 20060423
  14. FIRSTCIN [Concomitant]
     Dosage: 250 MG / DAY
     Route: 042
     Dates: start: 20060301, end: 20060410
  15. BETAMETHASONE [Concomitant]
     Dosage: 2 MG / DAY
     Route: 042
     Dates: start: 20060309, end: 20060417
  16. TARGOCID [Concomitant]
     Dosage: 800 MG / DAY
     Route: 042
     Dates: start: 20060324, end: 20060417

REACTIONS (15)
  - BRAIN OEDEMA [None]
  - CYTOMEGALOVIRUS VIRAEMIA [None]
  - EPSTEIN-BARR VIRUS ASSOCIATED LYMPHOPROLIFERATIVE DISORDER [None]
  - EPSTEIN-BARR VIRUS INFECTION [None]
  - HAEMOLYTIC ANAEMIA [None]
  - HYPERCHOLESTEROLAEMIA [None]
  - HYPERTRIGLYCERIDAEMIA [None]
  - METASTASES TO CENTRAL NERVOUS SYSTEM [None]
  - OBLITERATIVE BRONCHIOLITIS [None]
  - PNEUMATOSIS INTESTINALIS [None]
  - RED BLOOD CELL ABNORMALITY [None]
  - RENAL FAILURE [None]
  - RENAL IMPAIRMENT [None]
  - THROMBOCYTOPENIA [None]
  - THROMBOTIC MICROANGIOPATHY [None]
